FAERS Safety Report 17189447 (Version 1)
Quarter: 2019Q4

REPORT INFORMATION
  Report Type: Spontaneous
  Country: FR (occurrence: FR)
  Receive Date: 20191223
  Receipt Date: 20191223
  Transmission Date: 20200122
  Serious: Yes (Life-Threatening, Other)
  Sender: FDA-Public Use
  Company Number: FR-SA-2019SA353174

PATIENT
  Age: 55 Year
  Sex: Male
  Weight: 81 kg

DRUGS (4)
  1. THYMOGLOBULINE [Suspect]
     Active Substance: LAPINE T-LYMPHOCYTE IMMUNE GLOBULIN
     Indication: STEM CELL TRANSPLANT
     Route: 042
     Dates: start: 20191025, end: 20191025
  2. KARDEGIC [Concomitant]
     Active Substance: ASPIRIN DL-LYSINE
  3. BISOCE [Concomitant]
     Active Substance: BISOPROLOL
  4. RAMIPRIL. [Concomitant]
     Active Substance: RAMIPRIL

REACTIONS (4)
  - Shock [Recovered/Resolved]
  - Acute kidney injury [Recovered/Resolved]
  - Hepatitis acute [Recovered/Resolved]
  - Cytokine release syndrome [Recovered/Resolved]

NARRATIVE: CASE EVENT DATE: 20191025
